FAERS Safety Report 8050612-1 (Version None)
Quarter: 2012Q1

REPORT INFORMATION
  Report Type: 
  Country: None (occurrence: None)
  Receive Date: 20120117
  Receipt Date: 20120117
  Transmission Date: 20120608
  Serious: No
  Sender: FDA-Public Use
  Company Number: None

PATIENT
  Age: 57 Year
  Sex: Male
  Weight: 108.86 kg

DRUGS (1)
  1. PRADAXA [Suspect]
     Indication: VENTRICULAR FIBRILLATION
     Dosage: 1 TABLET
     Route: 048
     Dates: start: 20111215, end: 20120115

REACTIONS (6)
  - URINE OUTPUT DECREASED [None]
  - FLATULENCE [None]
  - URINE FLOW DECREASED [None]
  - NAUSEA [None]
  - FAECAL INCONTINENCE [None]
  - MICTURITION URGENCY [None]
